FAERS Safety Report 23547469 (Version 2)
Quarter: 2024Q1

REPORT INFORMATION
  Report Type: Spontaneous
  Country: US (occurrence: None)
  Receive Date: 20240221
  Receipt Date: 20240301
  Transmission Date: 20240410
  Serious: No
  Sender: FDA-Public Use
  Company Number: 2024A029708

PATIENT
  Sex: Female

DRUGS (1)
  1. BREZTRI [Suspect]
     Active Substance: BUDESONIDE\FORMOTEROL\GLYCOPYRROLATE
     Dosage: 160.0UG UNKNOWN
     Route: 055

REACTIONS (10)
  - Cough [Unknown]
  - Wrong technique in product usage process [Unknown]
  - Asthma [Unknown]
  - Gastrointestinal disorder [Unknown]
  - Intentional product misuse [Unknown]
  - Wrong technique in device usage process [Unknown]
  - Incorrect dose administered by device [Unknown]
  - Device use issue [Unknown]
  - Product use issue [Unknown]
  - Device delivery system issue [Unknown]
